FAERS Safety Report 14633160 (Version 1)
Quarter: 2018Q1

REPORT INFORMATION
  Report Type: Spontaneous
  Country: US (occurrence: US)
  Receive Date: 20180313
  Receipt Date: 20180313
  Transmission Date: 20180509
  Serious: No
  Sender: FDA-Public Use
  Company Number: US-SA-2017SA185915

PATIENT
  Age: 9 Year
  Sex: Male

DRUGS (2)
  1. LEUKINE [Suspect]
     Active Substance: SARGRAMOSTIM
     Indication: MONOCLONAL ANTIBODY UNCONJUGATED THERAPY
     Route: 041
     Dates: start: 20170915
  2. LEUKINE [Suspect]
     Active Substance: SARGRAMOSTIM
     Indication: MONOCLONAL ANTIBODY UNCONJUGATED THERAPY
     Route: 041
     Dates: start: 20170714, end: 20170727

REACTIONS (7)
  - Injection site induration [Not Recovered/Not Resolved]
  - Injection site swelling [Not Recovered/Not Resolved]
  - Injection site hypersensitivity [Not Recovered/Not Resolved]
  - Diarrhoea [Recovered/Resolved]
  - Injection site erythema [Not Recovered/Not Resolved]
  - Injection site warmth [Not Recovered/Not Resolved]
  - Rash [Not Recovered/Not Resolved]

NARRATIVE: CASE EVENT DATE: 20170925
